FAERS Safety Report 8805283 (Version 2)
Quarter: 2014Q3

REPORT INFORMATION
  Report Type: Report from Study
  Country: US (occurrence: US)
  Receive Date: 20120924
  Receipt Date: 20140903
  Transmission Date: 20150326
  Serious: Yes (Hospitalization, Other)
  Sender: FDA-Public Use
  Company Number: US-ROCHE-1126555

PATIENT
  Sex: Male
  Weight: 89 kg

DRUGS (5)
  1. TAXOL [Concomitant]
     Active Substance: PACLITAXEL
  2. PARAPLATIN [Concomitant]
     Active Substance: CARBOPLATIN
  3. TARCEVA [Suspect]
     Active Substance: ERLOTINIB HYDROCHLORIDE
     Indication: PRODUCT USED FOR UNKNOWN INDICATION
     Route: 065
  4. AVASTIN [Suspect]
     Active Substance: BEVACIZUMAB
     Indication: NON-SMALL CELL LUNG CANCER
  5. AVASTIN [Suspect]
     Active Substance: BEVACIZUMAB
     Indication: MALIGNANT RESPIRATORY TRACT NEOPLASM
     Route: 042

REACTIONS (5)
  - Pleural effusion [Unknown]
  - Disease progression [Unknown]
  - Metastases to spine [Unknown]
  - Back pain [Unknown]
  - Decreased appetite [Unknown]
